FAERS Safety Report 4747335-0 (Version None)
Quarter: 2005Q3

REPORT INFORMATION
  Report Type: 
  Country: None (occurrence: None)
  Receive Date: 20050817
  Receipt Date: 20050412
  Transmission Date: 20060218
  Serious: Yes (Hospitalization, Other)
  Sender: FDA-Public Use
  Company Number: US-MERCK-0504USA01840

PATIENT
  Age: 77 Year
  Sex: Male
  Weight: 88 kg

DRUGS (8)
  1. VIOXX [Suspect]
     Indication: OSTEOARTHRITIS
     Route: 048
     Dates: start: 20010505, end: 20040601
  2. VIOXX [Suspect]
     Indication: ARTHRALGIA
     Route: 048
     Dates: start: 20010505, end: 20040601
  3. ZOCOR [Concomitant]
     Route: 048
  4. ZANTAC [Concomitant]
     Route: 065
  5. MONOPRIL [Concomitant]
     Route: 048
  6. FUROSEMIDE [Concomitant]
     Route: 065
  7. AZMACORT [Concomitant]
     Route: 065
  8. ZYRTEC [Concomitant]
     Route: 065

REACTIONS (22)
  - ANXIETY [None]
  - ASTHMA [None]
  - ATHEROSCLEROSIS [None]
  - BREATH SOUNDS ABNORMAL [None]
  - CARDIAC FAILURE CONGESTIVE [None]
  - CAROTID ARTERY STENOSIS [None]
  - CATARACT [None]
  - CORONARY ARTERY DISEASE [None]
  - COUGH [None]
  - DILATATION ATRIAL [None]
  - DYSPNOEA [None]
  - ESSENTIAL HYPERTENSION [None]
  - GOUT [None]
  - GROIN PAIN [None]
  - HAEMORRHOIDS [None]
  - HERPES SIMPLEX [None]
  - HYPERCHOLESTEROLAEMIA [None]
  - MITRAL VALVE INCOMPETENCE [None]
  - MYOCARDIAL INFARCTION [None]
  - MYOCARDIAL ISCHAEMIA [None]
  - RASH [None]
  - TRICUSPID VALVE INCOMPETENCE [None]
